FAERS Safety Report 7127544-6 (Version None)
Quarter: 2010Q4

REPORT INFORMATION
  Report Type: 
  Country: None (occurrence: None)
  Receive Date: 20101129
  Receipt Date: 20100622
  Transmission Date: 20110411
  Serious: No
  Sender: FDA-Public Use
  Company Number: US-PFIZER INC-2010078339

PATIENT
  Sex: Male

DRUGS (3)
  1. VIAGRA [Suspect]
     Indication: ERECTILE DYSFUNCTION
     Dosage: 50 MG, UNK
  2. NASONEX [Suspect]
     Indication: SINUS DISORDER
     Dosage: UNK
  3. RHINOCORT [Suspect]
     Indication: SINUS DISORDER
     Dosage: UNK

REACTIONS (4)
  - DRUG INEFFECTIVE [None]
  - ERECTILE DYSFUNCTION [None]
  - POTENTIATING DRUG INTERACTION [None]
  - SINUS DISORDER [None]
